FAERS Safety Report 18984115 (Version 5)
Quarter: 2024Q2

REPORT INFORMATION
  Report Type: Spontaneous
  Country: US (occurrence: US)
  Receive Date: 20210309
  Receipt Date: 20240425
  Transmission Date: 20240716
  Serious: Yes (Other)
  Sender: FDA-Public Use
  Company Number: US-BAYER-2021-095061

PATIENT
  Sex: Male

DRUGS (2)
  1. KOVALTRY [Suspect]
     Active Substance: ANTIHEMOPHILIC FACTOR, HUMAN RECOMBINANT
     Indication: Factor VIII deficiency
     Dosage: INFUSE 3000 UNITS (+/- 10%) INTRAVENOUSLY EVERY 48 HOURS AND 3000 UNITS (+/- 10%)INTRAVENOUSLY DAILY
     Route: 042
     Dates: start: 201905
  2. KOVALTRY [Suspect]
     Active Substance: ANTIHEMOPHILIC FACTOR, HUMAN RECOMBINANT
     Indication: Factor VIII deficiency
     Dosage: USED 2 DOSES TO TREAT ACTIVE BLEED ON HIS LOWER BACK

REACTIONS (1)
  - Haemorrhage [None]
